FAERS Safety Report 10041263 (Version 1)
Quarter: 2014Q1

REPORT INFORMATION
  Report Type: Spontaneous
  Country: AU (occurrence: None)
  Receive Date: 20140325
  Receipt Date: 20140325
  Transmission Date: 20141002
  Serious: Yes (Hospitalization)
  Sender: FDA-Public Use
  Company Number: 2014-000758

PATIENT
  Sex: Male

DRUGS (5)
  1. ACTONEL EC COMBI D (RISEDRONATE SODIUM, EDETATE DISODIUM, CALCIUM CARBONATE, VITAMIN D3) TABLET, 35MG [Suspect]
     Indication: OSTEOPOROSIS
     Route: 048
     Dates: start: 20140210, end: 20140211
  2. ASPIRIN W/DIPYRIDAMOLE (ACETYLSALICYLIC ACID, DIPYRIDAMOLE) [Concomitant]
  3. FLUOXETINE HYDROCHLORIDE (FLUOXETINE HYDROCHLORIDE) [Concomitant]
  4. PRAMIPEXOLE HYDROCHLORIDE (PRAMIPEXOLE DIHYDROCHLORIDE) [Concomitant]
  5. RANITIDINE (RANITIDINE) [Concomitant]

REACTIONS (7)
  - Abdominal pain [None]
  - Abdominal pain upper [None]
  - Constipation [None]
  - Musculoskeletal pain [None]
  - Influenza like illness [None]
  - Dyspepsia [None]
  - Dysphagia [None]
